FAERS Safety Report 9053636 (Version 1)
Quarter: 2013Q1

REPORT INFORMATION
  Report Type: Spontaneous
  Country: BR (occurrence: BR)
  Receive Date: 20130208
  Receipt Date: 20130208
  Transmission Date: 20140127
  Serious: Yes (Death)
  Sender: FDA-Public Use
  Company Number: PHHY2013BR011855

PATIENT
  Age: 93 Year
  Sex: Male

DRUGS (3)
  1. DIOVAN [Suspect]
     Route: 048
  2. SERETIDE [Concomitant]
     Indication: CHRONIC OBSTRUCTIVE PULMONARY DISEASE
     Dosage: 2 DF, DAILY
     Dates: start: 20060103
  3. SERETIDE [Concomitant]
     Indication: BRONCHIAL HYPERREACTIVITY

REACTIONS (1)
  - Death [Fatal]
